FAERS Safety Report 9359190 (Version 1)
Quarter: 2013Q2

REPORT INFORMATION
  Report Type: Spontaneous
  Country: CA (occurrence: CA)
  Receive Date: 20130620
  Receipt Date: 20130620
  Transmission Date: 20140414
  Serious: Yes (Other)
  Sender: FDA-Public Use
  Company Number: CA-TEVA-413960USA

PATIENT
  Age: 12 Year
  Sex: Female
  Weight: 102.15 kg

DRUGS (3)
  1. DESMOPRESSIN [Suspect]
     Route: 065
  2. HYDROCORTISONE [Concomitant]
     Dosage: POWDER FOR SOLUTION
     Route: 030
  3. THYROXINE [Concomitant]

REACTIONS (3)
  - Abdominal pain [Recovered/Resolved]
  - Dyspnoea [Recovered/Resolved]
  - Rash [Recovered/Resolved]
